FAERS Safety Report 13211981 (Version 2)
Quarter: 2017Q1

REPORT INFORMATION
  Report Type: Spontaneous
  Country: AU (occurrence: AU)
  Receive Date: 20170210
  Receipt Date: 20170217
  Transmission Date: 20170428
  Serious: Yes (Hospitalization)
  Sender: FDA-Public Use
  Company Number: AU-JNJFOC-20170205276

PATIENT
  Sex: Male
  Weight: 68 kg

DRUGS (1)
  1. STELARA [Suspect]
     Active Substance: USTEKINUMAB
     Indication: PRODUCT USED FOR UNKNOWN INDICATION
     Route: 058
     Dates: end: 201701

REACTIONS (2)
  - Weight decreased [Recovered/Resolved]
  - Abdominal abscess [Recovered/Resolved]
